FAERS Safety Report 7295980-3 (Version None)
Quarter: 2011Q1

REPORT INFORMATION
  Report Type: 
  Country: None (occurrence: None)
  Receive Date: 20110216
  Receipt Date: 20101115
  Transmission Date: 20110831
  Serious: No
  Sender: FDA-Public Use
  Company Number: US-ABBOTT-10P-163-0685865-00

PATIENT

DRUGS (1)
  1. SIMCOR [Suspect]
     Indication: PRODUCT USED FOR UNKNOWN INDICATION
     Dosage: CUTS THE PILL IN HALF EVERY NIGHT

REACTIONS (4)
  - MUSCULAR WEAKNESS [None]
  - WRONG TECHNIQUE IN DRUG USAGE PROCESS [None]
  - PARAESTHESIA [None]
  - SKIN DISCOLOURATION [None]
